FAERS Safety Report 23084134 (Version 3)
Quarter: 2023Q4

REPORT INFORMATION
  Report Type: Report from Study
  Country: FI (occurrence: FI)
  Receive Date: 20231019
  Receipt Date: 20231109
  Transmission Date: 20240110
  Serious: Yes (Hospitalization)
  Sender: FDA-Public Use
  Company Number: FI-PFIZER INC-PV202300169748

PATIENT
  Age: 54 Year
  Sex: Male

DRUGS (5)
  1. ENCORAFENIB [Suspect]
     Active Substance: ENCORAFENIB
     Indication: Malignant melanoma
     Dosage: ENCORAFENIB/PLACEBO, ONCE DAILY
     Route: 048
     Dates: start: 20230216, end: 20231010
  2. BINIMETINIB [Suspect]
     Active Substance: BINIMETINIB
     Indication: Malignant melanoma
     Dosage: BINIMETINIB/PLACEBO, TWICE DAILY
     Route: 048
     Dates: start: 20230216, end: 20231010
  3. PEMBROLIZUMAB [Suspect]
     Active Substance: PEMBROLIZUMAB
     Indication: Malignant melanoma
     Dosage: 200 MG, CYCLIC 21 DAYS, TREATMENT ON DAY 1
     Route: 042
     Dates: start: 20230216, end: 20231024
  4. IBUPROFEN [Concomitant]
     Active Substance: IBUPROFEN
     Indication: Pain
     Dosage: 600 MG, PRN, UP TO THREE TIMES DAILY
     Route: 048
     Dates: start: 20230831
  5. FLUOROMETHOLONE [Concomitant]
     Active Substance: FLUOROMETHOLONE
     Indication: Posterior capsule opacification
     Dosage: 1 GGT, THREE TIMES DAILY
     Route: 047
     Dates: start: 20230831, end: 20231004

REACTIONS (1)
  - Iridocyclitis [Recovered/Resolved]

NARRATIVE: CASE EVENT DATE: 20231011
